FAERS Safety Report 24680676 (Version 3)
Quarter: 2025Q3

REPORT INFORMATION
  Report Type: Spontaneous
  Country: RU (occurrence: RU)
  Receive Date: 20241129
  Receipt Date: 20250802
  Transmission Date: 20251021
  Serious: Yes (Other)
  Sender: ALEXION PHARMACEUTICALS
  Company Number: RU-ASTRAZENECA-202411RUS018420RU

PATIENT
  Age: 70 Year
  Sex: Male
  Weight: 100 kg

DRUGS (1)
  1. IMFINZI [Suspect]
     Active Substance: DURVALUMAB
     Indication: Non-small cell lung cancer stage III
     Dosage: 1500 MILLIGRAM, Q4W
     Dates: end: 202411

REACTIONS (4)
  - Disease progression [Not Recovered/Not Resolved]
  - Diabetes mellitus [Unknown]
  - Pulmonary mass [Not Recovered/Not Resolved]
  - Off label use [Recovered/Resolved]
